FAERS Safety Report 9251358 (Version 1)
Quarter: 2013Q2

REPORT INFORMATION
  Report Type: Spontaneous
  Country: US (occurrence: US)
  Receive Date: 20130424
  Receipt Date: 20130424
  Transmission Date: 20140414
  Serious: Yes (Other)
  Sender: FDA-Public Use
  Company Number: US-PFIZER INC-2013127133

PATIENT
  Sex: Male

DRUGS (1)
  1. XANAX [Suspect]
     Dosage: 0.25 MG, 1X/DAY (AT NIGHT)

REACTIONS (2)
  - Atrial fibrillation [Unknown]
  - Therapeutic response unexpected [Unknown]
